FAERS Safety Report 7782619-3 (Version None)
Quarter: 2011Q3

REPORT INFORMATION
  Report Type: 
  Country: None (occurrence: None)
  Receive Date: 20110926
  Receipt Date: 20110910
  Transmission Date: 20111222
  Serious: Yes (Other)
  Sender: FDA-Public Use
  Company Number: 2011AP002089

PATIENT
  Age: 59 Year
  Sex: Male

DRUGS (4)
  1. INFLIXIMAB [Suspect]
     Indication: RHEUMATOID ARTHRITIS
  2. LEFLUNOMIDE [Suspect]
     Indication: RHEUMATOID ARTHRITIS
  3. METHOTREXATE [Suspect]
     Indication: RHEUMATOID ARTHRITIS
  4. PREDNISONE [Suspect]
     Indication: RHEUMATOID ARTHRITIS

REACTIONS (3)
  - HEPATIC INFECTION FUNGAL [None]
  - FUNGAEMIA [None]
  - HISTOPLASMOSIS [None]
